FAERS Safety Report 17765440 (Version 1)
Quarter: 2020Q2

REPORT INFORMATION
  Report Type: Spontaneous
  Country: US (occurrence: US)
  Receive Date: 20200508
  Receipt Date: 20200508
  Transmission Date: 20200714
  Serious: Yes (Other)
  Sender: FDA-Public Use
  Company Number: None

PATIENT
  Age: 31 Year
  Sex: Male
  Weight: 83.25 kg

DRUGS (1)
  1. OCREVUS [Suspect]
     Active Substance: OCRELIZUMAB
     Indication: MULTIPLE SCLEROSIS
     Dosage: ?          OTHER FREQUENCY:300MG DAY 0,14;?
     Route: 041
     Dates: start: 20200508

REACTIONS (4)
  - Ear pruritus [None]
  - Pruritus [None]
  - Erythema [None]
  - Feeling hot [None]

NARRATIVE: CASE EVENT DATE: 20200508
